FAERS Safety Report 7415915-X (Version None)
Quarter: 2011Q2

REPORT INFORMATION
  Report Type: 
  Country: None (occurrence: None)
  Receive Date: 20110414
  Receipt Date: 20110411
  Transmission Date: 20111010
  Serious: Yes (Death, Hospitalization)
  Sender: FDA-Public Use
  Company Number: CA-ABBOTT-10P-028-0655991-00

PATIENT
  Sex: Female
  Weight: 86.714 kg

DRUGS (2)
  1. PREDNISONE [Concomitant]
     Indication: PRODUCT USED FOR UNKNOWN INDICATION
     Dates: start: 20070101, end: 20080301
  2. HUMIRA [Suspect]
     Indication: PSORIATIC ARTHROPATHY
     Route: 058
     Dates: start: 20070924

REACTIONS (9)
  - HOSPITALISATION [None]
  - SYNCOPE [None]
  - EMPHYSEMA [None]
  - LUNG NEOPLASM MALIGNANT [None]
  - BONE CANCER METASTATIC [None]
  - DYSPNOEA [None]
  - CHEST PAIN [None]
  - FALL [None]
  - PAIN [None]
